FAERS Safety Report 18660210 (Version 2)
Quarter: 2020Q4

REPORT INFORMATION
  Report Type: Spontaneous
  Country: JP (occurrence: JP)
  Receive Date: 20201223
  Receipt Date: 20201225
  Transmission Date: 20210114
  Serious: Yes (Death, Hospitalization, Other)
  Sender: FDA-Public Use
  Company Number: JP-SAKK-2020SA366057AA

PATIENT

DRUGS (1)
  1. DOCETAXEL. [Suspect]
     Active Substance: DOCETAXEL
     Indication: PROSTATE CANCER
     Dosage: UNK
     Route: 041
     Dates: start: 201811

REACTIONS (7)
  - Embolic stroke [Fatal]
  - Aphasia [Fatal]
  - Diplegia [Fatal]
  - Pyrexia [Fatal]
  - Endocarditis [Fatal]
  - Neutrophil count decreased [Fatal]
  - Hemiplegia [Fatal]

NARRATIVE: CASE EVENT DATE: 201811
